FAERS Safety Report 12272685 (Version 3)
Quarter: 2017Q1

REPORT INFORMATION
  Report Type: Spontaneous
  Country: DE (occurrence: DE)
  Receive Date: 20160415
  Receipt Date: 20170313
  Transmission Date: 20170428
  Serious: Yes (Hospitalization, Other)
  Sender: FDA-Public Use
  Company Number: DE-AMGEN-DEUSP2016045026

PATIENT
  Age: 71 Year
  Sex: Female
  Weight: 97.2 kg

DRUGS (6)
  1. CARFILZOMIB [Suspect]
     Active Substance: CARFILZOMIB
     Indication: PLASMA CELL MYELOMA
     Dosage: 39 MG, D1 AND D2
     Route: 042
     Dates: start: 20160323, end: 20160324
  2. CARFILZOMIB [Suspect]
     Active Substance: CARFILZOMIB
     Dosage: 53 MG D8 AND D9
     Route: 042
     Dates: start: 20160330
  3. PANOBINOSTAT [Concomitant]
     Active Substance: PANOBINOSTAT
     Dosage: UNK
  4. LENALIDOMIDE [Concomitant]
     Active Substance: LENALIDOMIDE
     Indication: PLASMA CELL MYELOMA
     Dosage: 15 MG, QD
     Route: 048
     Dates: start: 20160323, end: 20160331
  5. DEXAMETHASONE. [Concomitant]
     Active Substance: DEXAMETHASONE
     Indication: CHEMOTHERAPY
     Dosage: 40 MG, D1 D8
     Route: 048
     Dates: start: 20160323, end: 20160330
  6. BORTEZOMIB [Concomitant]
     Active Substance: BORTEZOMIB
     Dosage: UNK

REACTIONS (10)
  - Cardiac arrest [Recovering/Resolving]
  - Hypokalaemia [Unknown]
  - Central nervous system lesion [Unknown]
  - Pancytopenia [Unknown]
  - Syncope [Unknown]
  - Cardiovascular disorder [Unknown]
  - Chest pain [Unknown]
  - Loss of consciousness [Unknown]
  - Diastolic dysfunction [Unknown]
  - Tricuspid valve incompetence [Unknown]

NARRATIVE: CASE EVENT DATE: 20160331
